FAERS Safety Report 6162215-4 (Version None)
Quarter: 2009Q2

REPORT INFORMATION
  Report Type: 
  Country: None (occurrence: None)
  Receive Date: 20090421
  Receipt Date: 20090415
  Transmission Date: 20091009
  Serious: Yes (Hospitalization, Other)
  Sender: FDA-Public Use
  Company Number: CA-JNJFOC-20090403575

PATIENT
  Age: 28 Year
  Sex: Male

DRUGS (4)
  1. RISPERDAL CONSTA [Suspect]
     Indication: INTENTIONAL DRUG MISUSE
     Route: 030
  2. FLUANXOL [Concomitant]
     Route: 030
  3. SEROQUEL [Concomitant]
     Route: 048
  4. SEROQUEL [Concomitant]
     Route: 048

REACTIONS (2)
  - INTENTIONAL DRUG MISUSE [None]
  - WRONG TECHNIQUE IN DRUG USAGE PROCESS [None]
